FAERS Safety Report 9156287 (Version 1)
Quarter: 2013Q1

REPORT INFORMATION
  Report Type: Spontaneous
  Country: US (occurrence: US)
  Receive Date: 20130109
  Receipt Date: 20130109
  Transmission Date: 20140127
  Serious: Yes (Other)
  Sender: FDA-Public Use
  Company Number: US-RB-048425-13

PATIENT
  Age: 26 Year
  Sex: Male

DRUGS (5)
  1. SUBOXONE FILM [Suspect]
     Indication: DRUG DEPENDENCE
     Dosage: SUBOXONE FILM
     Route: 060
     Dates: start: 201202, end: 20121228
  2. PRISTIQ [Concomitant]
     Indication: ANXIETY
     Dosage: DOSING DETAILS UNKNOWN
     Route: 065
  3. PRISTIQ [Concomitant]
     Indication: DEPRESSION
     Dosage: DOSING DETAILS UNKNOWN
     Route: 065
  4. VIIBRYD [Concomitant]
     Indication: ANXIETY
     Dosage: DOSING DETAILS UNKNOWN
     Route: 065
  5. VIIBRYD [Concomitant]
     Indication: DEPRESSION
     Dosage: DOSING DETAILS UNKNOWN
     Route: 065

REACTIONS (6)
  - Wrong technique in drug usage process [Recovered/Resolved]
  - Road traffic accident [Recovered/Resolved]
  - Rib fracture [Not Recovered/Not Resolved]
  - Upper limb fracture [Not Recovered/Not Resolved]
  - Musculoskeletal chest pain [Not Recovered/Not Resolved]
  - Pain in extremity [Not Recovered/Not Resolved]
